FAERS Safety Report 16831037 (Version 1)
Quarter: 2019Q3

REPORT INFORMATION
  Report Type: Spontaneous
  Country: US (occurrence: US)
  Receive Date: 20190920
  Receipt Date: 20190920
  Transmission Date: 20191005
  Serious: Yes (Other)
  Sender: FDA-Public Use
  Company Number: US-BTG-201900098

PATIENT
  Age: 39 Year
  Sex: Female

DRUGS (1)
  1. VARITHENA [Suspect]
     Active Substance: POLIDOCANOL
     Indication: PERIPHERAL VENOUS DISEASE
     Dosage: APPROXIMATELY 5 CC?S OF FOAM WERE USED IN TREATMENT.
     Route: 065

REACTIONS (2)
  - Pain in extremity [Unknown]
  - Venous thrombosis limb [Not Recovered/Not Resolved]

NARRATIVE: CASE EVENT DATE: 20190603
